FAERS Safety Report 8855022 (Version 2)
Quarter: 2012Q4

REPORT INFORMATION
  Report Type: 
  Country: JP (occurrence: JP)
  Receive Date: 20121023
  Receipt Date: 20121031
  Transmission Date: 20130627
  Serious: Yes (Hospitalization, Other)
  Sender: FDA-Public Use
  Company Number: PHHY2012JP027903

PATIENT
  Age: 38 Year
  Sex: Female

DRUGS (1)
  1. EXFORGE [Suspect]
     Indication: GESTATIONAL HYPERTENSION
     Dosage: UNK
     Route: 048

REACTIONS (4)
  - Premature separation of placenta [Unknown]
  - Gestational diabetes [Unknown]
  - Exposure during pregnancy [Unknown]
  - Normal newborn [Unknown]
